FAERS Safety Report 11911460 (Version 1)
Quarter: 2016Q1

REPORT INFORMATION
  Report Type: Spontaneous
  Country: US (occurrence: US)
  Receive Date: 20160112
  Receipt Date: 20160112
  Transmission Date: 20160526
  Serious: Yes (Other)
  Sender: FDA-Public Use
  Company Number: US-BAYER-2016-005092

PATIENT
  Age: 93 Year
  Sex: Female

DRUGS (2)
  1. ALKA-SELTZER ORIGINAL [Suspect]
     Active Substance: ANHYDROUS CITRIC ACID\ASPIRIN\SODIUM BICARBONATE
  2. BAYER LOW DOSE [Suspect]
     Active Substance: ASPIRIN

REACTIONS (1)
  - Haemorrhage [None]
